FAERS Safety Report 9210798 (Version 1)
Quarter: 2013Q2

REPORT INFORMATION
  Report Type: Spontaneous
  Country: US (occurrence: US)
  Receive Date: 20130404
  Receipt Date: 20130404
  Transmission Date: 20140414
  Serious: Yes (Other)
  Sender: FDA-Public Use
  Company Number: CHPA2013US005714

PATIENT
  Age: 71 Year
  Sex: Female

DRUGS (1)
  1. EXCEDRIN PM [Suspect]
     Indication: INSOMNIA
     Dosage: 1 DF, QHS
     Route: 048

REACTIONS (5)
  - Myocardial infarction [Recovered/Resolved]
  - Cardiac disorder [Not Recovered/Not Resolved]
  - Off label use [Unknown]
  - Underdose [Unknown]
  - Incorrect drug administration duration [Unknown]
